FAERS Safety Report 4547589-X (Version None)
Quarter: 2004Q4

REPORT INFORMATION
  Report Type: 
  Country: None (occurrence: None)
  Receive Date: 20041223
  Receipt Date: 20040827
  Transmission Date: 20050328
  Serious: Yes (Other)
  Sender: FDA-Public Use
  Company Number: US-JNJFOC-20031200976

PATIENT
  Age: 32 Year
  Sex: Female
  Weight: 82.1011 kg

DRUGS (7)
  1. ORTHO EVRA [Suspect]
     Indication: CONTRACEPTION
     Dosage: 1 DOSE(S), 3 IN 4 WEEK, TRANSDERMAL
     Route: 062
     Dates: start: 20031001, end: 20031124
  2. DIET PILLS (DIET FORMULATIONS FOR TREATMENT OF OBESITY) TABLETS [Concomitant]
  3. BENTYL [Concomitant]
  4. PRENATAL (PRENATAL) [Concomitant]
  5. INSULIN NPH (INSULIN) INJECTION [Concomitant]
  6. INSULIN H (INSULIN) INJECTION [Concomitant]
  7. MACROBID [Concomitant]

REACTIONS (2)
  - DRUG EXPOSURE DURING PREGNANCY [None]
  - UNINTENDED PREGNANCY [None]
